FAERS Safety Report 4535558-5 (Version None)
Quarter: 2004Q4

REPORT INFORMATION
  Report Type: 
  Country: None (occurrence: None)
  Receive Date: 20041214
  Receipt Date: 20040925
  Transmission Date: 20050328
  Serious: Yes (Other)
  Sender: FDA-Public Use
  Company Number: 2004235453US

PATIENT
  Age: 51 Year
  Sex: Female
  Weight: 68 kg

DRUGS (3)
  1. BEXTRA [Suspect]
     Indication: JOINT SPRAIN
     Dosage: 10 MG, QD
     Dates: start: 20040924, end: 20040925
  2. SYNTHROID [Concomitant]
  3. TYLENOL PM [Concomitant]

REACTIONS (2)
  - DIARRHOEA [None]
  - RECTAL HAEMORRHAGE [None]
